FAERS Safety Report 12156353 (Version 1)
Quarter: 2016Q1

REPORT INFORMATION
  Report Type: Spontaneous
  Country: CN (occurrence: CN)
  Receive Date: 20160307
  Receipt Date: 20160307
  Transmission Date: 20160526
  Serious: Yes (Other)
  Sender: FDA-Public Use
  Company Number: CN-ELI_LILLY_AND_COMPANY-CN201603001309

PATIENT
  Age: 45 Year
  Sex: Male

DRUGS (2)
  1. ERBITUX [Suspect]
     Active Substance: CETUXIMAB
     Indication: GASTROINTESTINAL CARCINOMA
     Dosage: 400 MG/M2, UNKNOWN
     Route: 042
     Dates: start: 20160224
  2. DEXAMETHASONE. [Concomitant]
     Active Substance: DEXAMETHASONE
     Indication: PREMEDICATION
     Dosage: UNK UNK, UNKNOWN
     Route: 065
     Dates: start: 20160224

REACTIONS (3)
  - Pruritus generalised [Unknown]
  - Hypotension [Unknown]
  - Vision blurred [Unknown]

NARRATIVE: CASE EVENT DATE: 20160224
